FAERS Safety Report 9632858 (Version 2)
Quarter: 2013Q4

REPORT INFORMATION
  Report Type: Spontaneous
  Country: AU (occurrence: AU)
  Receive Date: 20131018
  Receipt Date: 20131023
  Transmission Date: 20140711
  Serious: Yes (Death, Other)
  Sender: FDA-Public Use
  Company Number: PHHY2013AU116750

PATIENT
  Age: 47 Year
  Sex: Female

DRUGS (1)
  1. CLOZAPINE [Suspect]
     Dosage: UNK

REACTIONS (5)
  - Toxicity to various agents [Fatal]
  - Haemorrhage [Fatal]
  - Haematoma [Unknown]
  - Head injury [Unknown]
  - Antipsychotic drug level above therapeutic [Unknown]
